FAERS Safety Report 19892344 (Version 1)
Quarter: 2021Q3

REPORT INFORMATION
  Report Type: Spontaneous
  Country: US (occurrence: US)
  Receive Date: 20210928
  Receipt Date: 20210928
  Transmission Date: 20211014
  Serious: Yes (Other)
  Sender: FDA-Public Use
  Company Number: US-PERRIGO-21US018300

PATIENT
  Age: 43 Year
  Sex: Male

DRUGS (2)
  1. RANITIDINE HYDROCHLORIDE (852) [Suspect]
     Active Substance: RANITIDINE HYDROCHLORIDE
     Indication: GASTROOESOPHAGEAL REFLUX DISEASE
     Dosage: DOSE FREQUENCY: DAILY
     Route: 048
     Dates: start: 199706, end: 201404
  2. RANITIDINE HYDROCHLORIDE (852) [Suspect]
     Active Substance: RANITIDINE HYDROCHLORIDE
     Indication: GASTRITIS

REACTIONS (1)
  - Testis cancer [Unknown]
